FAERS Safety Report 8162587-5 (Version None)
Quarter: 2012Q1

REPORT INFORMATION
  Report Type: 
  Country: None (occurrence: None)
  Receive Date: 20120224
  Receipt Date: 20120213
  Transmission Date: 20120608
  Serious: Yes (Hospitalization)
  Sender: FDA-Public Use
  Company Number: US-SANOFI-AVENTIS-2012SA009301

PATIENT
  Sex: Male

DRUGS (9)
  1. POTASSIUM CHLORIDE [Concomitant]
  2. TAMSULOSIN HCL [Concomitant]
  3. ENALAPRIL MALEATE [Concomitant]
  4. JANUVIA [Concomitant]
  5. FUROSEMIDE [Concomitant]
  6. AMLODIPINE [Concomitant]
  7. PRAVASTATIN [Concomitant]
  8. PLAVIX [Suspect]
  9. ATENOLOL [Concomitant]

REACTIONS (3)
  - EMPHYSEMA [None]
  - CHRONIC OBSTRUCTIVE PULMONARY DISEASE [None]
  - PNEUMONIA [None]
